FAERS Safety Report 6330834-8 (Version None)
Quarter: 2009Q3

REPORT INFORMATION
  Report Type: 
  Country: None (occurrence: None)
  Receive Date: 20090827
  Receipt Date: 20090819
  Transmission Date: 20100115
  Serious: Yes (Death, Other)
  Sender: FDA-Public Use
  Company Number: CA-B.I. PHARMACEUTICALS,INC./RIDGEFIELD-2009-DE-05532GD

PATIENT

DRUGS (20)
  1. VIRAMUNE [Suspect]
     Indication: HIV INFECTION
  2. GINKGO BILOBA [Suspect]
  3. GLYCEROL 2.6% [Suspect]
  4. LAMIVUDINE [Suspect]
     Indication: HIV INFECTION
  5. VIDEX [Suspect]
     Indication: HIV INFECTION
  6. ZERIT [Suspect]
     Indication: HIV INFECTION
  7. ACIDOPHILUS [Suspect]
  8. BETA-CAROTENE [Suspect]
  9. CHROMIUM [Suspect]
  10. FOLIC ACID [Suspect]
  11. LECITHIN [Suspect]
  12. MAGNESIUM [Suspect]
  13. NIACIN [Suspect]
  14. SELENIUM [Suspect]
  15. SENNA [Suspect]
  16. VITAMIN A [Suspect]
  17. VITAMIN B-12 [Suspect]
  18. VITAMIN B COMPLEX CAP [Suspect]
  19. ASCORBIC ACID [Suspect]
  20. VITAMIN E [Suspect]

REACTIONS (8)
  - ACUTE HEPATIC FAILURE [None]
  - ASCITES [None]
  - DEATH [None]
  - DRUG INTERACTION [None]
  - DYSPEPSIA [None]
  - HEPATITIS [None]
  - JAUNDICE [None]
  - VOMITING [None]
